FAERS Safety Report 7433949-6 (Version None)
Quarter: 2011Q2

REPORT INFORMATION
  Report Type: 
  Country: None (occurrence: None)
  Receive Date: 20110425
  Receipt Date: 20110412
  Transmission Date: 20111010
  Serious: Yes (Hospitalization)
  Sender: FDA-Public Use
  Company Number: US-JNJFOC-20110406681

PATIENT
  Sex: Male
  Weight: 104.33 kg

DRUGS (6)
  1. DURAGESIC-100 [Suspect]
     Indication: HYPOAESTHESIA
     Route: 062
  2. FENTANYL-100 [Suspect]
     Indication: NECK PAIN
     Route: 062
  3. LORATABS [Suspect]
     Indication: NECK PAIN
     Route: 048
  4. LORATABS [Suspect]
     Indication: HYPOAESTHESIA
     Route: 048
  5. FENTANYL-100 [Suspect]
     Indication: HYPOAESTHESIA
     Route: 062
  6. DURAGESIC-100 [Suspect]
     Indication: NECK PAIN
     Route: 062

REACTIONS (9)
  - FEELING ABNORMAL [None]
  - INAPPROPRIATE SCHEDULE OF DRUG ADMINISTRATION [None]
  - NERVOUSNESS [None]
  - WITHDRAWAL SYNDROME [None]
  - QUALITY OF LIFE DECREASED [None]
  - NECK PAIN [None]
  - IRRITABILITY [None]
  - PRODUCT QUALITY ISSUE [None]
  - DRUG EFFECT DECREASED [None]
